FAERS Safety Report 6987344-4 (Version None)
Quarter: 2010Q3

REPORT INFORMATION
  Report Type: 
  Country: None (occurrence: None)
  Receive Date: 20100827
  Receipt Date: 20100624
  Transmission Date: 20110219
  Serious: No
  Sender: FDA-Public Use
  Company Number: 004978

PATIENT
  Age: 73 Year
  Sex: Male

DRUGS (9)
  1. LACOSAMIDE [Suspect]
     Indication: CONVULSION
     Dosage: 50; 100 MG BID
     Dates: end: 20091227
  2. KEPPRA [Concomitant]
  3. LAMICTAL [Concomitant]
  4. FELBAROL [Concomitant]
  5. PREDNISONE [Concomitant]
  6. SYNTHROID [Concomitant]
  7. PROTONIX [Concomitant]
  8. ZOLEDRONIC ACID [Concomitant]
  9. DIAMOX SRC [Concomitant]

REACTIONS (4)
  - CONVULSION [None]
  - DIZZINESS [None]
  - FALL [None]
  - RIB FRACTURE [None]
